FAERS Safety Report 5223616-1 (Version None)
Quarter: 2007Q1

REPORT INFORMATION
  Report Type: 
  Country: None (occurrence: None)
  Receive Date: 20070130
  Receipt Date: 20070118
  Transmission Date: 20070707
  Serious: Yes (Hospitalization, Other)
  Sender: FDA-Public Use
  Company Number: US-JNJFOC-20061206333

PATIENT
  Sex: Male

DRUGS (5)
  1. INFLIXIMAB [Suspect]
     Indication: RHEUMATOID ARTHRITIS
     Route: 042
  2. ARAVA [Concomitant]
  3. TYLENOL [Concomitant]
  4. CALCIUM + D [Concomitant]
  5. MULTI-VITAMIN [Concomitant]

REACTIONS (1)
  - PANCREATIC CARCINOMA [None]
